FAERS Safety Report 5750605-0 (Version None)
Quarter: 2008Q2

REPORT INFORMATION
  Report Type: 
  Country: None (occurrence: None)
  Receive Date: 20080523
  Receipt Date: 20080523
  Transmission Date: 20081010
  Serious: Yes (Other)
  Sender: FDA-Public Use
  Company Number: None

PATIENT
  Sex: Male
  Weight: 77.1115 kg

DRUGS (7)
  1. DIGITEK, 125 MCG, BERTEK PHARM [Suspect]
     Indication: ISCHAEMIC CARDIOMYOPATHY
     Dosage: 125 MCG  1 X DAILY  047
     Dates: start: 20070701, end: 20080501
  2. COREG CR [Concomitant]
  3. OMEGA 3 HMJ [Concomitant]
  4. LISINOPRIL [Concomitant]
  5. SERTRALINE HCL [Concomitant]
  6. ASPIRIN [Concomitant]
  7. SULINDAC [Concomitant]

REACTIONS (6)
  - DIZZINESS [None]
  - HYPOTENSION [None]
  - INFLUENZA [None]
  - NAUSEA [None]
  - PHARMACEUTICAL PRODUCT COMPLAINT [None]
  - VOMITING [None]
